FAERS Safety Report 18580296 (Version 2)
Quarter: 2020Q4

REPORT INFORMATION
  Report Type: Spontaneous
  Country: CN (occurrence: CN)
  Receive Date: 20201204
  Receipt Date: 20201216
  Transmission Date: 20210114
  Serious: Yes (Hospitalization)
  Sender: FDA-Public Use
  Company Number: NVSC2020CN319197

PATIENT
  Age: 70 Year
  Sex: Female

DRUGS (1)
  1. TEGRETOL [Suspect]
     Active Substance: CARBAMAZEPINE
     Indication: TRIGEMINAL NEURALGIA
     Dosage: UNK, BID (HALF TABLET/TIME)
     Route: 048
     Dates: start: 20201010, end: 20201120

REACTIONS (9)
  - Pharyngeal swelling [Recovered/Resolved]
  - Drug ineffective [Unknown]
  - Pruritus [Recovering/Resolving]
  - Hypersensitivity [Recovering/Resolving]
  - Lymphadenopathy [Unknown]
  - Eye oedema [Recovered/Resolved]
  - Rash [Recovering/Resolving]
  - Swelling face [Recovered/Resolved]
  - Dyspnoea [Recovered/Resolved]

NARRATIVE: CASE EVENT DATE: 20201101
